FAERS Safety Report 16467816 (Version 1)
Quarter: 2019Q2

REPORT INFORMATION
  Report Type: Spontaneous
  Country: US (occurrence: US)
  Receive Date: 20190513
  Receipt Date: 20190513
  Transmission Date: 20190711
  Serious: Yes (Hospitalization)
  Sender: FDA-Public Use
  Company Number: None

PATIENT
  Age: 76 Year
  Sex: Male

DRUGS (1)
  1. DALFAMPRIDINE 10MG ER TAB [Suspect]
     Active Substance: DALFAMPRIDINE
     Indication: MULTIPLE SCLEROSIS
     Route: 048
     Dates: start: 201804, end: 201812

REACTIONS (4)
  - Multiple sclerosis relapse [None]
  - Therapy cessation [None]
  - Hip fracture [None]
  - Fall [None]

NARRATIVE: CASE EVENT DATE: 20190513
